FAERS Safety Report 5625960-2 (Version None)
Quarter: 2008Q1

REPORT INFORMATION
  Report Type: 
  Country: None (occurrence: None)
  Receive Date: 20080213
  Receipt Date: 20080213
  Transmission Date: 20080703
  Serious: Yes (Other)
  Sender: FDA-Public Use
  Company Number: None

PATIENT
  Age: 51 Year
  Sex: Female
  Weight: 61.2356 kg

DRUGS (2)
  1. LYRICA [Suspect]
     Indication: FIBROMYALGIA
     Dosage: 1 CAPSULE  2X A DAY  PO
     Route: 048
     Dates: start: 20080122, end: 20080204
  2. LYRICA [Suspect]
     Indication: FIBROMYALGIA
     Dosage: 1 CAPSULE  3X ADAY  PO
     Route: 048
     Dates: start: 20040101, end: 20080104

REACTIONS (2)
  - AGGRESSION [None]
  - SUICIDAL IDEATION [None]
